FAERS Safety Report 20369109 (Version 2)
Quarter: 2022Q1

REPORT INFORMATION
  Report Type: Report from Study
  Country: NL (occurrence: NL)
  Receive Date: 20220124
  Receipt Date: 20220127
  Transmission Date: 20220424
  Serious: Yes (Disabling, Other)
  Sender: FDA-Public Use
  Company Number: NL-BAYER-2022A011898

PATIENT
  Sex: Female

DRUGS (1)
  1. CIPROFLOXACIN [Suspect]
     Active Substance: CIPROFLOXACIN
     Indication: Escherichia urinary tract infection
     Dosage: 0.5 G, BID
     Route: 048

REACTIONS (2)
  - Hydronephrosis [Recovered/Resolved with Sequelae]
  - Acute myeloid leukaemia [Recovered/Resolved with Sequelae]
